FAERS Safety Report 4884602-4 (Version None)
Quarter: 2005Q4

REPORT INFORMATION
  Report Type: 
  Country: None (occurrence: None)
  Receive Date: 20051201
  Receipt Date: 20050920
  Transmission Date: 20060501
  Serious: No
  Sender: FDA-Public Use
  Company Number: 2005PV002330

PATIENT
  Age: 68 Year
  Sex: Female

DRUGS (2)
  1. BYETTA [Suspect]
     Dosage: 10 MCG; BID; SC; 5 MCG
     Route: 058
     Dates: start: 20050101, end: 20050101
  2. BYETTA [Suspect]
     Dosage: 10 MCG; BID; SC; 5 MCG
     Route: 058
     Dates: start: 20050101

REACTIONS (2)
  - INJECTION SITE HAEMORRHAGE [None]
  - INJECTION SITE PAIN [None]
